FAERS Safety Report 20986283 (Version 1)
Quarter: 2022Q2

REPORT INFORMATION
  Report Type: Spontaneous
  Country: US (occurrence: None)
  Receive Date: 20220617
  Receipt Date: 20220617
  Transmission Date: 20220721
  Serious: Yes (Life-Threatening)
  Sender: FDA-Public Use
  Company Number: None

PATIENT
  Age: 41 Year
  Sex: Male
  Weight: 90 kg

DRUGS (2)
  1. FABRAZYME [Suspect]
     Active Substance: AGALSIDASE BETA
     Indication: Fabry^s disease
     Dosage: OTHER FREQUENCY : EVERY 2 WEEKS?
     Route: 041
  2. FABRAZYME [Concomitant]
     Active Substance: AGALSIDASE BETA
     Dates: start: 20220616, end: 20220616

REACTIONS (11)
  - Dyspnoea [None]
  - Infusion related reaction [None]
  - Oxygen saturation decreased [None]
  - Erythema [None]
  - Pruritus [None]
  - Hyperhidrosis [None]
  - Vomiting [None]
  - Heart rate increased [None]
  - Blood pressure decreased [None]
  - Feeling cold [None]
  - Snoring [None]

NARRATIVE: CASE EVENT DATE: 20220616
